FAERS Safety Report 8295668-6 (Version None)
Quarter: 2012Q2

REPORT INFORMATION
  Report Type: 
  Country: None (occurrence: None)
  Receive Date: 20120418
  Receipt Date: 20120412
  Transmission Date: 20120825
  Serious: Yes (Hospitalization, Other)
  Sender: FDA-Public Use
  Company Number: US-MERCK-1104USA01066

PATIENT
  Age: 58 Year
  Sex: Female
  Weight: 86 kg

DRUGS (6)
  1. FOSAMAX [Suspect]
     Indication: OSTEOPENIA
     Route: 048
     Dates: start: 20010901, end: 20100901
  2. VITAMIN D (UNSPECIFIED) [Concomitant]
     Route: 065
     Dates: start: 20010101
  3. VITAMINS (UNSPECIFIED) [Concomitant]
     Route: 065
     Dates: start: 20010101
  4. HORMONES (UNSPECIFIED) [Concomitant]
     Route: 065
     Dates: start: 19940101, end: 20020101
  5. CALCIUM (UNSPECIFIED) [Concomitant]
     Route: 065
     Dates: start: 20010101
  6. FOSAMAX [Suspect]
     Route: 048
     Dates: start: 20080101

REACTIONS (88)
  - CARDIAC FAILURE CONGESTIVE [None]
  - ARTHROPATHY [None]
  - STERNAL FRACTURE [None]
  - NASAL DISORDER [None]
  - MENTAL STATUS CHANGES [None]
  - WOUND INFECTION STAPHYLOCOCCAL [None]
  - NASAL TURBINATE HYPERTROPHY [None]
  - VITAMIN D DEFICIENCY [None]
  - VITAMIN B12 DEFICIENCY [None]
  - TINEA CRURIS [None]
  - PITUITARY TUMOUR BENIGN [None]
  - GASTROOESOPHAGEAL REFLUX DISEASE [None]
  - BLOOD LUTEINISING HORMONE DECREASED [None]
  - IRON DEFICIENCY [None]
  - BLOOD FOLLICLE STIMULATING HORMONE DECREASED [None]
  - ROAD TRAFFIC ACCIDENT [None]
  - ACCIDENTAL OVERDOSE [None]
  - ANXIETY [None]
  - APPENDIX DISORDER [None]
  - DRUG ERUPTION [None]
  - CORNEAL SCAR [None]
  - NOCTURIA [None]
  - NECK PAIN [None]
  - TOOTH DISORDER [None]
  - FOOT DEFORMITY [None]
  - IMPAIRED GASTRIC EMPTYING [None]
  - FALL [None]
  - POST GASTRIC SURGERY SYNDROME [None]
  - BLOOD CHOLESTEROL INCREASED [None]
  - ANKLE FRACTURE [None]
  - TIBIA FRACTURE [None]
  - DEPRESSION [None]
  - MUSCLE SPASMS [None]
  - ANGIOPATHY [None]
  - BLOOD THYROID STIMULATING HORMONE INCREASED [None]
  - ARTHRALGIA [None]
  - RIB FRACTURE [None]
  - ALOPECIA [None]
  - DERMATITIS [None]
  - BLOOD TRIGLYCERIDES INCREASED [None]
  - TRANSIENT ISCHAEMIC ATTACK [None]
  - PAPULE [None]
  - HYALOSIS ASTEROID [None]
  - HOT FLUSH [None]
  - HYPOACUSIS [None]
  - INTERMITTENT CLAUDICATION [None]
  - FAT NECROSIS [None]
  - ESSENTIAL HYPERTENSION [None]
  - BRAIN MASS [None]
  - BORDERLINE GLAUCOMA [None]
  - FEMUR FRACTURE [None]
  - DIPLOPIA [None]
  - LUMBAR SPINAL STENOSIS [None]
  - MESENTERIC ARTERY THROMBOSIS [None]
  - CELLULITIS [None]
  - DRUG HYPERSENSITIVITY [None]
  - STAPHYLOCOCCAL INFECTION [None]
  - INFECTION [None]
  - PERIPHERAL ARTERIAL OCCLUSIVE DISEASE [None]
  - REFRACTION DISORDER [None]
  - DYSSOMNIA [None]
  - CATARACT [None]
  - ANAEMIA OF CHRONIC DISEASE [None]
  - EYELID DISORDER [None]
  - CUTIS LAXA [None]
  - DEHYDRATION [None]
  - NEUROPATHY PERIPHERAL [None]
  - SYNCOPE [None]
  - PNEUMONIA [None]
  - OSTEOPOROSIS [None]
  - OSTEOMYELITIS CHRONIC [None]
  - CHRONIC SINUSITIS [None]
  - MUSCULOSKELETAL CHEST PAIN [None]
  - TOOTH INFECTION [None]
  - SEASONAL ALLERGY [None]
  - PEPTIC ULCER [None]
  - OTITIS MEDIA [None]
  - HYPERSENSITIVITY [None]
  - LOW TURNOVER OSTEOPATHY [None]
  - INTESTINAL ISCHAEMIA [None]
  - INSOMNIA [None]
  - ATELECTASIS [None]
  - OSTEOARTHRITIS [None]
  - DRY EYE [None]
  - NASAL SEPTUM DEVIATION [None]
  - URGE INCONTINENCE [None]
  - MUSCULOSKELETAL PAIN [None]
  - SEROMA [None]
